FAERS Safety Report 7287196-1 (Version None)
Quarter: 2010Q4

REPORT INFORMATION
  Report Type: 
  Country: None (occurrence: None)
  Receive Date: 20101222
  Receipt Date: 20101103
  Transmission Date: 20110411
  Serious: Yes (Hospitalization)
  Sender: FDA-Public Use
  Company Number: UTC-001954

PATIENT
  Age: 48 Year
  Sex: Female
  Weight: 129.3 kg

DRUGS (2)
  1. TYVASO [Suspect]
     Dosage: INHALATION
     Route: 055
     Dates: start: 20100304
  2. DIURETICS (DIURETICS) [Concomitant]

REACTIONS (1)
  - CELLULITIS [None]
